FAERS Safety Report 17494628 (Version 2)
Quarter: 2021Q1

REPORT INFORMATION
  Report Type: Spontaneous
  Country: US (occurrence: US)
  Receive Date: 20200303
  Receipt Date: 20210303
  Transmission Date: 20210419
  Serious: No
  Sender: FDA-Public Use
  Company Number: US-AMNEAL PHARMACEUTICALS-2019-AMRX-02766

PATIENT
  Age: 74 Year
  Sex: Female
  Weight: 61 kg

DRUGS (7)
  1. COREG [Concomitant]
     Active Substance: CARVEDILOL
     Indication: TACHYCARDIA
     Dosage: UNK, BID
     Route: 065
  2. RYTARY [Suspect]
     Active Substance: CARBIDOPA\LEVODOPA
     Dosage: 3 CAPSULES, TID
     Route: 048
  3. AMLODIPINE [Concomitant]
     Active Substance: AMLODIPINE BESYLATE
     Indication: BLOOD PRESSURE ABNORMAL
     Dosage: 5 MILLIGRAM, QD
     Route: 065
  4. RYTARY [Suspect]
     Active Substance: CARBIDOPA\LEVODOPA
     Dosage: 2 CAPSULES, TID
     Route: 048
     Dates: start: 20191005
  5. RYTARY [Suspect]
     Active Substance: CARBIDOPA\LEVODOPA
     Indication: PARKINSON^S DISEASE
     Dosage: 1 CAPSULES, TID
     Route: 048
     Dates: start: 20191004, end: 20191005
  6. GOCOVRI [Concomitant]
     Active Substance: AMANTADINE
     Indication: PRODUCT USED FOR UNKNOWN INDICATION
     Dosage: UNK UNK, QD
     Route: 065
     Dates: start: 20191011
  7. ASPIRINE [Concomitant]
     Active Substance: ASPIRIN
     Indication: PRODUCT USED FOR UNKNOWN INDICATION
     Dosage: UNK, BID 1 MORNING, 1 AFTERNOON
     Route: 065

REACTIONS (4)
  - Tremor [Not Recovered/Not Resolved]
  - Dyskinesia [Not Recovered/Not Resolved]
  - Pain in extremity [Unknown]
  - Muscle tightness [Unknown]

NARRATIVE: CASE EVENT DATE: 201910
